FAERS Safety Report 15155008 (Version 1)
Quarter: 2018Q3

REPORT INFORMATION
  Report Type: Report from Study
  Country: US (occurrence: US)
  Receive Date: 20180717
  Receipt Date: 20180717
  Transmission Date: 20181010
  Serious: No
  Sender: FDA-Public Use
  Company Number: PHEH2018US029308

PATIENT
  Age: 82 Year
  Sex: Female
  Weight: 116 kg

DRUGS (1)
  1. GLEEVEC [Suspect]
     Active Substance: IMATINIB MESYLATE
     Indication: PRODUCT USED FOR UNKNOWN INDICATION
     Dosage: 3 DF, QD
     Route: 065
     Dates: start: 201804

REACTIONS (5)
  - Visual impairment [Unknown]
  - Lacrimation increased [Unknown]
  - Rash [Unknown]
  - Myalgia [Unknown]
  - Bone pain [Unknown]

NARRATIVE: CASE EVENT DATE: 20180709
